FAERS Safety Report 14781095 (Version 4)
Quarter: 2018Q3

REPORT INFORMATION
  Report Type: Spontaneous
  Country: DE (occurrence: DE)
  Receive Date: 20180419
  Receipt Date: 20180913
  Transmission Date: 20181010
  Serious: Yes (Other)
  Sender: FDA-Public Use
  Company Number: DE-REGENERON PHARMACEUTICALS, INC.-2018-21456

PATIENT

DRUGS (7)
  1. EYLEA [Suspect]
     Active Substance: AFLIBERCEPT
     Dosage: 0.05 ML, ONCE, LEFT EYE
     Route: 031
  2. EYLEA [Suspect]
     Active Substance: AFLIBERCEPT
     Dosage: 0.05 ML, ONCE, LEFT EYE
     Route: 031
  3. EYLEA [Suspect]
     Active Substance: AFLIBERCEPT
     Dosage: 0.05 ML, ONCE, LEFT EYE
     Route: 031
  4. EYLEA [Suspect]
     Active Substance: AFLIBERCEPT
     Indication: NEOVASCULAR AGE-RELATED MACULAR DEGENERATION
     Dosage: 0.05 ML, ONCE, LEFT EYE
     Route: 031
  5. BRAUNOL [Concomitant]
     Active Substance: POVIDONE-IODINE
     Indication: PRODUCT USED FOR UNKNOWN INDICATION
  6. EYLEA [Suspect]
     Active Substance: AFLIBERCEPT
     Dosage: 0.05 ML, ONCE, LEFT EYE
     Route: 031
     Dates: start: 20170123, end: 20170123
  7. POVIDONE IOD [Concomitant]
     Indication: PRODUCT USED FOR UNKNOWN INDICATION

REACTIONS (6)
  - Vitreous opacities [Recovered/Resolved]
  - Intraocular pressure test abnormal [Recovered/Resolved]
  - Wrong technique in product usage process [Unknown]
  - Visual impairment [Recovered/Resolved]
  - Product physical issue [Unknown]
  - Blindness transient [Recovered/Resolved]

NARRATIVE: CASE EVENT DATE: 20180126
